FAERS Safety Report 26037100 (Version 1)
Quarter: 2025Q4

REPORT INFORMATION
  Report Type: Spontaneous
  Country: US (occurrence: US)
  Receive Date: 20251112
  Receipt Date: 20251112
  Transmission Date: 20260117
  Serious: Yes (Other)
  Sender: PARATEK PHARMACEUTICALS
  Company Number: US-PARATEK PHARMACEUTICALS, INC.-2025PTK00218

PATIENT
  Age: 59 Year
  Sex: Female
  Weight: 58.1 kg

DRUGS (12)
  1. NUZYRA [Suspect]
     Active Substance: OMADACYCLINE
     Indication: Mycobacterium abscessus infection
     Dosage: 300 MG, 1X/DAY
     Route: 048
     Dates: start: 202306, end: 20240325
  2. NUZYRA [Suspect]
     Active Substance: OMADACYCLINE
     Dosage: 150 MG, 1X/DAY
     Route: 048
     Dates: start: 20240420, end: 20241001
  3. ALBUTEROL [Concomitant]
     Active Substance: ALBUTEROL
  4. ALENDRONATE [Concomitant]
     Active Substance: ALENDRONATE SODIUM
  5. ARIKAYCE [Concomitant]
     Active Substance: AMIKACIN
  6. AMLODIPINE [Concomitant]
     Active Substance: AMLODIPINE BESYLATE
  7. CARVEDILOL [Concomitant]
     Active Substance: CARVEDILOL
  8. LEVOTHYROXINE [Concomitant]
     Active Substance: LEVOTHYROXINE
  9. PANTOPRAZOLE [Concomitant]
     Active Substance: PANTOPRAZOLE
  10. SACCHAROMYCES SPP. [Concomitant]
  11. SODIUM CHLORIDE [Concomitant]
     Active Substance: SODIUM CHLORIDE
  12. CLOFAZIMINE [Concomitant]
     Active Substance: CLOFAZIMINE

REACTIONS (4)
  - Alanine aminotransferase increased [Recovered/Resolved]
  - Aspartate aminotransferase increased [Recovered/Resolved]
  - Incorrect product administration duration [Recovered/Resolved]
  - Off label use [Recovered/Resolved]

NARRATIVE: CASE EVENT DATE: 20230601
